FAERS Safety Report 7880750-5 (Version None)
Quarter: 2011Q4

REPORT INFORMATION
  Report Type: 
  Country: None (occurrence: None)
  Receive Date: 20111101
  Receipt Date: 20111019
  Transmission Date: 20120403
  Serious: Yes (Other)
  Sender: FDA-Public Use
  Company Number: US-ELI_LILLY_AND_COMPANY-US201108004994

PATIENT
  Age: 54 Year
  Sex: Female
  Weight: 45.805 kg

DRUGS (2)
  1. CYMBALTA [Suspect]
     Indication: DEPRESSION
     Dosage: 60 MG, QD
     Route: 048
     Dates: start: 20060401
  2. ESTROGEN NOS [Concomitant]
     Dosage: UNK
     Dates: start: 20090101

REACTIONS (1)
  - BREAST CANCER [None]
